FAERS Safety Report 9990248 (Version 1)
Quarter: 2013Q4

REPORT INFORMATION
  Report Type: Spontaneous
  Country: FR (occurrence: None)
  Receive Date: 20131121
  Receipt Date: 20131121
  Transmission Date: 20140711
  Serious: Yes (Other)
  Sender: FDA-Public Use
  Company Number: FR-GAMBRO-1428306

PATIENT
  Sex: 0

DRUGS (1)
  1. CALCIUM CHLORIDE DIHYDRATE W/GLUCOSE MONOHYDRATE [Suspect]
     Indication: RENAL FAILURE ACUTE
     Route: 010

REACTIONS (2)
  - Haemorrhage [None]
  - Haemoglobin decreased [None]
